FAERS Safety Report 9719718 (Version 2)
Quarter: 2013Q4

REPORT INFORMATION
  Report Type: Spontaneous
  Country: VE (occurrence: VE)
  Receive Date: 20131128
  Receipt Date: 20131211
  Transmission Date: 20140711
  Serious: Yes (Death, Other)
  Sender: FDA-Public Use
  Company Number: VE-AMGEN-VENSP2013083654

PATIENT
  Age: 72 Year
  Sex: Male

DRUGS (2)
  1. ENBREL [Suspect]
     Indication: RHEUMATOID ARTHRITIS
     Dosage: 25 MG, 2X/WEEK
     Route: 058
     Dates: start: 2013, end: 201304
  2. ENALAPRIL [Concomitant]
     Indication: HYPERTENSION
     Dosage: 20 MG, 1X/DAY
     Route: 048
     Dates: start: 1993

REACTIONS (4)
  - Pulmonary thrombosis [Fatal]
  - Hip fracture [Recovered/Resolved]
  - Device failure [Not Recovered/Not Resolved]
  - Fall [Recovered/Resolved]
